FAERS Safety Report 13856106 (Version 1)
Quarter: 2017Q3

REPORT INFORMATION
  Report Type: Spontaneous
  Country: BE (occurrence: BE)
  Receive Date: 20170810
  Receipt Date: 20170810
  Transmission Date: 20171127
  Serious: Yes (Death, Life-Threatening, Hospitalization, Disabling, Other)
  Sender: FDA-Public Use
  Company Number: BE-DSJP-DSU-2017-129703

PATIENT
  Age: 95 Year
  Sex: Male
  Weight: 73.5 kg

DRUGS (1)
  1. LIXIANA [Suspect]
     Active Substance: EDOXABAN TOSYLATE
     Indication: PULMONARY EMBOLISM
     Dosage: 60 MG, QD
     Route: 048
     Dates: start: 20170304, end: 20170517

REACTIONS (4)
  - Renal impairment [Unknown]
  - Haemarthrosis [Unknown]
  - Death [Fatal]
  - Haemorrhage [Unknown]

NARRATIVE: CASE EVENT DATE: 20170514
